FAERS Safety Report 8009320-5 (Version None)
Quarter: 2011Q4

REPORT INFORMATION
  Report Type: 
  Country: None (occurrence: None)
  Receive Date: 20111227
  Receipt Date: 20111215
  Transmission Date: 20120403
  Serious: Yes (Hospitalization)
  Sender: FDA-Public Use
  Company Number: HU-ELI_LILLY_AND_COMPANY-HU201112005322

PATIENT
  Age: 50 Year
  Sex: Female

DRUGS (2)
  1. OLANZAPINE [Suspect]
     Indication: SCHIZOPHRENIA, PARANOID TYPE
     Dosage: 405 MG, MONTHLY (1/M)
     Route: 030
     Dates: start: 20100101
  2. ABILIFY [Concomitant]

REACTIONS (4)
  - DISTURBANCE IN ATTENTION [None]
  - RESPIRATORY RATE DECREASED [None]
  - HYPOTENSION [None]
  - URINARY INCONTINENCE [None]
